FAERS Safety Report 5441080-4 (Version None)
Quarter: 2007Q3

REPORT INFORMATION
  Report Type: 
  Country: None (occurrence: None)
  Receive Date: 20070831
  Receipt Date: 20070822
  Transmission Date: 20080115
  Serious: Yes (Hospitalization, Other)
  Sender: FDA-Public Use
  Company Number: US-PFIZER INC-2007046054

PATIENT
  Sex: Female
  Weight: 41.363 kg

DRUGS (5)
  1. CHANTIX [Suspect]
     Indication: SMOKING CESSATION THERAPY
     Dates: start: 20070509, end: 20070523
  2. NEURONTIN [Concomitant]
  3. ZOCOR [Concomitant]
     Indication: BLOOD CHOLESTEROL DECREASED
  4. ALL OTHER THERAPEUTIC PRODUCTS [Concomitant]
     Indication: PAIN
  5. ANTIHYPERTENSIVES [Concomitant]
     Indication: HYPERTENSION

REACTIONS (2)
  - CHOLECYSTITIS [None]
  - NAUSEA [None]
